FAERS Safety Report 9656842 (Version 4)
Quarter: 2014Q1

REPORT INFORMATION
  Report Type: Spontaneous
  Country: IT (occurrence: None)
  Receive Date: 20131028
  Receipt Date: 20140219
  Transmission Date: 20141002
  Serious: Yes (Hospitalization)
  Sender: FDA-Public Use
  Company Number: SYM-2013-11967

PATIENT
  Age: 61 Year
  Sex: Male

DRUGS (17)
  1. 5 FU [Suspect]
     Indication: COLORECTAL CANCER METASTATIC
     Route: 041
     Dates: start: 20130723, end: 20130723
  2. AFLIBERCEPT [Suspect]
     Indication: COLORECTAL CANCER METASTATIC
     Route: 041
     Dates: start: 20130723, end: 20130723
  3. IRINOTECAN (IRINOTECAN) (SOLUTION FOR INFUSION) (IRINOTECAN) [Suspect]
     Indication: COLORECTAL CANCER METASTATIC
     Route: 041
     Dates: start: 20130723, end: 20130723
  4. LEUCOVORIN [Suspect]
     Indication: COLORECTAL CANCER METASTATIC
     Route: 041
     Dates: start: 20130723, end: 20130723
  5. EUTIROX [Concomitant]
  6. CARDIOASPIRINA [Concomitant]
  7. ANGIOTENSIN II ANTAGONISTS [Concomitant]
  8. CYANOCOBALAMIN/FOLIC ACID/IRON [Concomitant]
  9. CORTICOSTEROIDS (CORTICOSTEROIDS) [Concomitant]
  10. ZANTAC (RANITDINE HYDROCHLORIDE) (RANITIDINE HYDROCHLORIDE) [Concomitant]
  11. SEROTONIN ANTAGONISTS (SEROTONIN ANTAGONISTS) [Concomitant]
  12. ANTIHISTAMINES (ANTIHISTAMINES) [Concomitant]
  13. ANTICHOLINERGICS (ANTICHLOINERGICS) [Concomitant]
  14. LOPERAMIDE (LOPERAMIDE) (LOPERAMIDE) [Concomitant]
  15. OMEPRAZOLE (OMEPRAZOLE) (OMEPRAZOLE) [Concomitant]
  16. TRIASPORIN (ITRACONAZOLE) (ITRACONAZOLE) [Concomitant]
  17. PLASIL (METOCLOPRAMIDE HYDROCHLORIDE) (METOCLOPRAMIDE HYDROCHLORIDE) [Concomitant]

REACTIONS (1)
  - Diarrhoea [None]
